FAERS Safety Report 25556273 (Version 2)
Quarter: 2025Q3

REPORT INFORMATION
  Report Type: Report from Study
  Country: US (occurrence: US)
  Receive Date: 20250715
  Receipt Date: 20250901
  Transmission Date: 20251020
  Serious: Yes (Other)
  Sender: TAKEDA
  Company Number: US-TAKEDA-2025TUS039701

PATIENT
  Sex: Female
  Weight: 71 kg

DRUGS (20)
  1. LANADELUMAB [Suspect]
     Active Substance: LANADELUMAB
     Indication: Immune system disorder
     Dosage: 300 MILLIGRAM, Q2WEEKS
  2. LANADELUMAB [Suspect]
     Active Substance: LANADELUMAB
  3. LANADELUMAB [Suspect]
     Active Substance: LANADELUMAB
  4. ATORVASTATIN CALCIUM [Concomitant]
     Active Substance: ATORVASTATIN CALCIUM
  5. ZYRTEC [Concomitant]
     Active Substance: CETIRIZINE HYDROCHLORIDE
  6. FAMOTIDINE [Concomitant]
     Active Substance: FAMOTIDINE
  7. FISH OIL [Concomitant]
     Active Substance: FISH OIL
  8. VITAMIN B [Concomitant]
     Active Substance: VITAMIN B
  9. VITAMIN D3 [Concomitant]
     Active Substance: CHOLECALCIFEROL
  10. MAGNESIUM OXIDE [Concomitant]
     Active Substance: MAGNESIUM OXIDE
  11. ICATIBANT [Concomitant]
     Active Substance: ICATIBANT ACETATE
  12. BIOTIN [Concomitant]
     Active Substance: BIOTIN
  13. CALCIUM\CHOLECALCIFEROL [Concomitant]
     Active Substance: CALCIUM\CHOLECALCIFEROL
  14. HYDROCHLOROTHIAZIDE [Concomitant]
     Active Substance: HYDROCHLOROTHIAZIDE
  15. GABAPENTIN [Concomitant]
     Active Substance: GABAPENTIN
  16. KETOCONAZOLE [Concomitant]
     Active Substance: KETOCONAZOLE
  17. XIIDRA [Concomitant]
     Active Substance: LIFITEGRAST
  18. EPINEPHRINE [Concomitant]
     Active Substance: EPINEPHRINE
  19. AMLODIPINE BESYLATE [Concomitant]
     Active Substance: AMLODIPINE BESYLATE
  20. MONTELUKAST SODIUM [Concomitant]
     Active Substance: MONTELUKAST SODIUM

REACTIONS (2)
  - Lymphoma [Unknown]
  - Splenomegaly [Unknown]
